FAERS Safety Report 9702531 (Version 3)
Quarter: 2013Q4

REPORT INFORMATION
  Report Type: Spontaneous
  Country: US (occurrence: US)
  Receive Date: 20131121
  Receipt Date: 20131204
  Transmission Date: 20140711
  Serious: Yes (Hospitalization, Other)
  Sender: FDA-Public Use
  Company Number: US-GILEAD-2013-0087511

PATIENT
  Age: 46 Year
  Sex: Female

DRUGS (1)
  1. LETAIRIS [Suspect]
     Indication: PRODUCT USED FOR UNKNOWN INDICATION
     Dosage: 10 MG, UNK
     Dates: start: 20110224

REACTIONS (6)
  - Sepsis [Unknown]
  - Malignant hypertension [Unknown]
  - Upper gastrointestinal haemorrhage [Unknown]
  - Renal failure acute [Unknown]
  - Local swelling [Unknown]
  - Pain in extremity [Unknown]
